FAERS Safety Report 15668360 (Version 1)
Quarter: 2018Q4

REPORT INFORMATION
  Report Type: Spontaneous
  Country: HU (occurrence: HU)
  Receive Date: 20181129
  Receipt Date: 20181129
  Transmission Date: 20190205
  Serious: Yes (Death)
  Sender: FDA-Public Use
  Company Number: HU-ABBVIE-18P-076-2289540-00

PATIENT
  Age: 92 Year
  Sex: Female

DRUGS (3)
  1. VENCLYXTO [Suspect]
     Active Substance: VENETOCLAX
     Indication: REFRACTORY CANCER
  2. VENCLYXTO [Suspect]
     Active Substance: VENETOCLAX
     Indication: MYELODYSPLASTIC SYNDROME
  3. VENCLYXTO [Suspect]
     Active Substance: VENETOCLAX
     Indication: ACUTE MYELOID LEUKAEMIA
     Route: 048
     Dates: start: 20180312

REACTIONS (6)
  - Therapeutic response unexpected [Unknown]
  - Infection [Fatal]
  - Product use in unapproved indication [Unknown]
  - Bone marrow disorder [Unknown]
  - Off label use [Unknown]
  - Cytopenia [Fatal]

NARRATIVE: CASE EVENT DATE: 20180312
